FAERS Safety Report 5307406-7 (Version None)
Quarter: 2007Q2

REPORT INFORMATION
  Report Type: 
  Country: None (occurrence: None)
  Receive Date: 20070425
  Receipt Date: 20070416
  Transmission Date: 20071010
  Serious: Yes (Other)
  Sender: FDA-Public Use
  Company Number: PHEH2007US05545

PATIENT
  Age: 60 Year
  Sex: Female

DRUGS (23)
  1. ZELNORM [Suspect]
     Indication: IRRITABLE BOWEL SYNDROME
     Dosage: 6 MG, BID
     Route: 048
     Dates: start: 20030101, end: 20070409
  2. ZELNORM [Suspect]
     Dosage: 6 MG, BID
     Route: 048
     Dates: start: 19980101, end: 20010101
  3. MIRALAX [Concomitant]
     Route: 048
  4. PLAQUENIL [Concomitant]
     Dosage: 200 MG, BID
     Route: 048
  5. ULTRAM [Concomitant]
     Dosage: UNK, QD
     Route: 048
  6. ADVAIR DISKUS 100/50 [Concomitant]
     Indication: ASTHMA
     Dosage: 250/50
  7. SPIRIVA [Concomitant]
     Indication: ASTHMA
  8. NASONEX [Concomitant]
     Indication: ASTHMA
     Route: 045
  9. ZOLOFT [Concomitant]
     Dosage: UNK, QD
     Route: 048
  10. PREVACID [Concomitant]
     Dosage: 30 MG, BID
     Route: 048
  11. FLEXERIL [Concomitant]
     Indication: FIBROMYALGIA
     Route: 048
     Dates: start: 20020101
  12. COMBIVENT /JOR/ [Concomitant]
     Dosage: 1-2 DF, PRN
  13. ACTONEL [Concomitant]
     Dosage: 35 MG, QW
     Route: 048
  14. SINGULAIR [Concomitant]
     Dosage: 10 MG, QD
     Route: 048
  15. ESTRACE ^MEAD JOHNSON^ [Concomitant]
     Route: 067
  16. DARVOCET-N 100 [Concomitant]
     Route: 048
  17. LUNESTA [Concomitant]
     Dosage: 3 MG, UNK
     Route: 048
  18. VITAMIN D [Concomitant]
     Route: 048
  19. VAGIFEM [Concomitant]
  20. CALCIUM [Concomitant]
     Route: 048
  21. AMBIEN [Concomitant]
     Route: 048
  22. PHAZYME [Concomitant]
     Route: 048
  23. VITAMIN CAP [Concomitant]
     Route: 048

REACTIONS (17)
  - CARDIAC DISORDER [None]
  - CAROTID ARTERY DISEASE [None]
  - CEREBRAL ISCHAEMIA [None]
  - CHEST PAIN [None]
  - COMPLICATED MIGRAINE [None]
  - CONFUSIONAL STATE [None]
  - CONSTIPATION [None]
  - ELECTROCARDIOGRAM AMBULATORY [None]
  - FALL [None]
  - GASTROINTESTINAL MOTILITY DISORDER [None]
  - HEADACHE [None]
  - HEMIPARESIS [None]
  - HYPERTENSION [None]
  - HYPOTENSION [None]
  - PALPITATIONS [None]
  - POOR PERIPHERAL CIRCULATION [None]
  - SPEECH DISORDER [None]
